FAERS Safety Report 8422190-6 (Version None)
Quarter: 2012Q2

REPORT INFORMATION
  Report Type: 
  Country: None (occurrence: None)
  Receive Date: 20120323
  Receipt Date: 20111206
  Transmission Date: 20120825
  Serious: Yes (Other)
  Sender: FDA-Public Use
  Company Number: 163-21880-11023124

PATIENT
  Age: 79 Year
  Sex: Male

DRUGS (9)
  1. ZOCOR [Concomitant]
  2. REVLIMID [Suspect]
  3. PRILOSEC [Concomitant]
  4. REVLIMID [Suspect]
     Indication: MULTIPLE MYELOMA
     Dosage: SEE IMAGE, PO
     Route: 048
     Dates: start: 20101223
  5. REVLIMID [Suspect]
     Indication: MULTIPLE MYELOMA
     Dosage: SEE IMAGE, PO
     Route: 048
     Dates: start: 20110123
  6. REVLIMID [Suspect]
     Indication: MULTIPLE MYELOMA
     Dosage: SEE IMAGE, PO
     Route: 048
     Dates: start: 20101224
  7. REVLIMID [Suspect]
  8. DIOVAN [Concomitant]
  9. DECADRON [Concomitant]

REACTIONS (4)
  - MUSCLE SPASMS [None]
  - ASTHENIA [None]
  - VISION BLURRED [None]
  - RASH ERYTHEMATOUS [None]
